FAERS Safety Report 9221863 (Version 1)
Quarter: 2013Q1

REPORT INFORMATION
  Report Type: Spontaneous
  Country: US (occurrence: None)
  Receive Date: 20120907
  Receipt Date: 20120907
  Transmission Date: 20140127
  Serious: No
  Sender: FDA-Public Use
  Company Number: TH-2012-00476

PATIENT
  Age: 51 Year
  Sex: Male

DRUGS (1)
  1. EGRIFTA [Suspect]
     Indication: PRODUCT USED FOR UNKNOWN INDICATION
     Route: 058
     Dates: start: 20120423

REACTIONS (3)
  - Oedema [None]
  - Swelling [None]
  - Arthralgia [None]
